FAERS Safety Report 20518455 (Version 1)
Quarter: 2022Q1

REPORT INFORMATION
  Report Type: Spontaneous
  Country: US (occurrence: None)
  Receive Date: 20220224
  Receipt Date: 20220224
  Transmission Date: 20220423
  Serious: Yes (Hospitalization)
  Sender: FDA-Public Use
  Company Number: None

PATIENT
  Age: 36 Year
  Sex: Female

DRUGS (1)
  1. HUMIRA [Suspect]
     Active Substance: ADALIMUMAB
     Indication: Crohn^s disease
     Dosage: OTHER QUANTITY : 40MG/0.8ML;?FREQUENCY : WEEKLY;?
     Route: 058
     Dates: start: 20160819

REACTIONS (2)
  - Condition aggravated [None]
  - Haemorrhage [None]

NARRATIVE: CASE EVENT DATE: 20220201
